FAERS Safety Report 10534158 (Version 2)
Quarter: 2014Q4

REPORT INFORMATION
  Report Type: Spontaneous
  Country: None (occurrence: US)
  Receive Date: 20141022
  Receipt Date: 20141215
  Transmission Date: 20150529
  Serious: No
  Sender: FDA-Public Use
  Company Number: US-TEVA-516825USA

PATIENT
  Age: 63 Year
  Sex: Male

DRUGS (1)
  1. QNASL [Suspect]
     Active Substance: BECLOMETHASONE DIPROPIONATE
     Route: 048

REACTIONS (2)
  - Asthma [Recovered/Resolved with Sequelae]
  - Incorrect route of drug administration [Unknown]

NARRATIVE: CASE EVENT DATE: 20140614
